FAERS Safety Report 6669063-7 (Version None)
Quarter: 2010Q2

REPORT INFORMATION
  Report Type: 
  Country: None (occurrence: None)
  Receive Date: 20100406
  Receipt Date: 20100324
  Transmission Date: 20101027
  Serious: Yes (Other)
  Sender: FDA-Public Use
  Company Number: US-JNJCH-2010007794

PATIENT
  Sex: Female

DRUGS (3)
  1. ASPIRIN [Suspect]
     Indication: PROPHYLAXIS
     Route: 048
  2. HEPARIN [Suspect]
     Indication: PROPHYLAXIS
     Dosage: TEXT:5,000-6,000 IU EVERY 12 HOURS
     Route: 065
  3. CALCIUM CARBONATE [Concomitant]
     Indication: PROPHYLAXIS
     Dosage: TEXT:UNSPECIFIED
     Route: 065

REACTIONS (2)
  - ABORTION SPONTANEOUS [None]
  - DRUG EXPOSURE DURING PREGNANCY [None]
